FAERS Safety Report 18068368 (Version 8)
Quarter: 2021Q1

REPORT INFORMATION
  Report Type: Spontaneous
  Country: US (occurrence: US)
  Receive Date: 20200724
  Receipt Date: 20210312
  Transmission Date: 20210419
  Serious: Yes (Hospitalization)
  Sender: FDA-Public Use
  Company Number: US-SEATTLE GENETICS-2020SGN03135

PATIENT
  Age: 54 Year
  Sex: Female

DRUGS (5)
  1. CAPECITABINE. [Concomitant]
     Active Substance: CAPECITABINE
     Indication: BREAST CANCER FEMALE
  2. VITAMIN E                          /00110501/ [Concomitant]
     Active Substance: TOCOPHEROL
  3. TUKYSA [Suspect]
     Active Substance: TUCATINIB
     Indication: BREAST CANCER FEMALE
     Dosage: UNK, BID
     Route: 048
  4. TUKYSA [Suspect]
     Active Substance: TUCATINIB
     Dosage: UNK
     Route: 048
  5. HERCEPTIN [Concomitant]
     Active Substance: TRASTUZUMAB
     Indication: BREAST CANCER FEMALE

REACTIONS (12)
  - Dyspepsia [Unknown]
  - Lacrimal disorder [Unknown]
  - Product dose omission issue [Unknown]
  - Blood potassium decreased [Unknown]
  - Tremor [Unknown]
  - Memory impairment [Unknown]
  - Blood glucose fluctuation [Unknown]
  - Feeling cold [Unknown]
  - Hypersomnia [Unknown]
  - Liver function test increased [Unknown]
  - Pneumonia [Unknown]
  - Diarrhoea [Recovered/Resolved]

NARRATIVE: CASE EVENT DATE: 20200627
